FAERS Safety Report 5765647-9 (Version None)
Quarter: 2008Q2

REPORT INFORMATION
  Report Type: 
  Country: None (occurrence: None)
  Receive Date: 20080611
  Receipt Date: 20080604
  Transmission Date: 20081010
  Serious: Yes (Congenital Anomaly)
  Sender: FDA-Public Use
  Company Number: US-ALLERGAN-0806864US

PATIENT

DRUGS (14)
  1. BOTOX [Suspect]
     Indication: DRUG EXPOSURE DURING PREGNANCY
     Dosage: 400 UNITS, SINGLE
     Route: 064
     Dates: start: 20071102, end: 20071102
  2. DANTRIUM [Concomitant]
     Indication: DRUG EXPOSURE DURING PREGNANCY
     Dosage: 50 MG, Q6HR
     Route: 064
     Dates: start: 20071016
  3. PARLODEL [Concomitant]
     Indication: DRUG EXPOSURE DURING PREGNANCY
     Dosage: 7.5 MG, Q6HR
     Route: 064
     Dates: start: 20071016
  4. CATAPRES [Concomitant]
     Indication: DRUG EXPOSURE DURING PREGNANCY
     Dosage: 0.1 MG, TID
     Route: 064
     Dates: start: 20071016
  5. FERROUS SULFATE TAB [Concomitant]
     Indication: DRUG EXPOSURE DURING PREGNANCY
     Dosage: 300 MG, TID
     Route: 064
     Dates: start: 20071016
  6. OXYCODONE HCL [Concomitant]
     Indication: DRUG EXPOSURE DURING PREGNANCY
     Dosage: 5 MG, PRN
     Route: 064
     Dates: start: 20071016
  7. TYLENOL [Concomitant]
     Indication: DRUG EXPOSURE DURING PREGNANCY
     Dosage: 650 MG, PRN
     Route: 064
     Dates: start: 20071016
  8. VITAMIN TAB [Concomitant]
     Indication: DRUG EXPOSURE DURING PREGNANCY
     Dosage: 1 TABLET, QD
     Route: 064
     Dates: start: 20071017
  9. SENOKOT [Concomitant]
     Indication: DRUG EXPOSURE DURING PREGNANCY
     Dosage: 17.6 MG, QD
     Route: 064
     Dates: start: 20071017
  10. INSULIN [Concomitant]
     Indication: DRUG EXPOSURE DURING PREGNANCY
     Dosage: SLIDING SCALE, PRN
     Route: 064
     Dates: start: 20071022
  11. NYSTATIN [Concomitant]
     Indication: DRUG EXPOSURE DURING PREGNANCY
     Dosage: 500000 UNITS, QID
     Route: 064
     Dates: start: 20071102
  12. SCOPOLAMINE [Concomitant]
     Indication: DRUG EXPOSURE DURING PREGNANCY
     Dosage: 1.5 MG, EVERY 72 HOURS
     Route: 064
     Dates: start: 20071212
  13. BACLOFEN [Concomitant]
     Indication: DRUG EXPOSURE DURING PREGNANCY
     Dosage: 30 MG, TID
     Route: 064
     Dates: start: 20071112
  14. LOVENOX [Concomitant]
     Indication: DRUG EXPOSURE DURING PREGNANCY
     Dosage: 30 MG, QD
     Route: 064
     Dates: start: 20080101

REACTIONS (1)
  - CONGENITAL ANOMALY [None]
